FAERS Safety Report 16987298 (Version 3)
Quarter: 2020Q2

REPORT INFORMATION
  Report Type: Report from Study
  Country: US (occurrence: US)
  Receive Date: 20191104
  Receipt Date: 20200501
  Transmission Date: 20200713
  Serious: Yes (Other)
  Sender: FDA-Public Use
  Company Number: NVSC2019US022362

PATIENT
  Sex: Female

DRUGS (2)
  1. COSENTYX [Suspect]
     Active Substance: SECUKINUMAB
     Indication: PSORIATIC ARTHROPATHY
     Dosage: 300 MG, QW (ONCE WEEKLY FOR FIVE WEEKS, THEN ONCE EVERY FOUR WEEKS) (BENEATH THE SKIN, USUALLY VIA I
     Route: 058
     Dates: start: 20190907
  2. COSENTYX [Suspect]
     Active Substance: SECUKINUMAB
     Indication: PSORIASIS

REACTIONS (3)
  - Diarrhoea [Unknown]
  - Psoriatic arthropathy [Recovering/Resolving]
  - Hepatic enzyme increased [Unknown]
